FAERS Safety Report 4605635-9 (Version None)
Quarter: 2005Q1

REPORT INFORMATION
  Report Type: 
  Country: None (occurrence: None)
  Receive Date: 20050310
  Receipt Date: 20041215
  Transmission Date: 20050727
  Serious: No
  Sender: FDA-Public Use
  Company Number: US-BRISTOL-MYERS SQUIBB COMPANY-12797759

PATIENT
  Age: 39 Year
  Sex: Female
  Weight: 77 kg

DRUGS (1)
  1. VAGISTAT-1 [Suspect]
     Indication: VAGINAL MYCOSIS
     Route: 067
     Dates: start: 20041212, end: 20041212

REACTIONS (5)
  - DYSURIA [None]
  - VAGINAL PAIN [None]
  - VULVAL ERYTHEMA [None]
  - VULVAL OEDEMA [None]
  - VULVOVAGINAL DISCOMFORT [None]
